FAERS Safety Report 23189239 (Version 1)
Quarter: 2023Q4

REPORT INFORMATION
  Report Type: Spontaneous
  Country: GB (occurrence: GB)
  Receive Date: 20231115
  Receipt Date: 20231115
  Transmission Date: 20240110
  Serious: Yes (Other)
  Sender: FDA-Public Use
  Company Number: GB-MHRA-MIDB-58355406-fa3a-4923-8f53-62d01b4944fe

PATIENT
  Age: 44 Year
  Sex: Female

DRUGS (5)
  1. ENALAPRIL [Suspect]
     Active Substance: ENALAPRIL
     Indication: Hypertension
     Dosage: 40 MG,ONCE A DAY,
     Route: 048
     Dates: start: 20120201
  2. ADALAT CC [Concomitant]
     Active Substance: NIFEDIPINE
     Indication: Hypertension
     Dosage: 60 MG,ONCE A DAY,
     Route: 048
     Dates: start: 20070802
  3. FUROSEMIDE [Concomitant]
     Active Substance: FUROSEMIDE
     Indication: Hypertension
     Dosage: 120 MG,ONCE A DAY,
     Route: 048
     Dates: start: 20110630
  4. LABETALOL [Concomitant]
     Active Substance: LABETALOL\LABETALOL HYDROCHLORIDE
     Indication: Hypertension
     Dosage: 400 MG,3 TIMES A DAY,
     Route: 048
     Dates: start: 20081112
  5. SIMVASTATIN [Concomitant]
     Active Substance: SIMVASTATIN
     Indication: Transient ischaemic attack
     Dosage: 40 MG,ONCE A DAY,
     Route: 048
     Dates: start: 20120301

REACTIONS (1)
  - Onycholysis [Not Recovered/Not Resolved]

NARRATIVE: CASE EVENT DATE: 20121101
